FAERS Safety Report 18244864 (Version 5)
Quarter: 2020Q4

REPORT INFORMATION
  Report Type: Report from Study
  Country: ES (occurrence: ES)
  Receive Date: 20200908
  Receipt Date: 20201224
  Transmission Date: 20210113
  Serious: Yes (Death, Hospitalization)
  Sender: FDA-Public Use
  Company Number: ES-EXELIXIS-XL18420032545

PATIENT
  Age: 77 Year
  Sex: Female
  Weight: 55 kg

DRUGS (14)
  1. PIPERACILLIN/TAZOBACTAM [Concomitant]
     Active Substance: PIPERACILLIN SODIUM\TAZOBACTAM SODIUM
  2. HALOPERIDOL. [Concomitant]
     Active Substance: HALOPERIDOL
  3. ATEZOLIZUMAB. [Suspect]
     Active Substance: ATEZOLIZUMAB
     Indication: TRANSITIONAL CELL CARCINOMA
     Dosage: 1200 MG, Q3WEEKS
     Route: 042
     Dates: start: 20200109, end: 20200827
  4. MORPHINE [Concomitant]
     Active Substance: MORPHINE
  5. PANTOPRAZOLE [Concomitant]
     Active Substance: PANTOPRAZOLE
  6. XL184 [Suspect]
     Active Substance: CABOZANTINIB
     Indication: TRANSITIONAL CELL CARCINOMA
     Dosage: 40 MG, QD
     Route: 048
     Dates: start: 20200109, end: 20200820
  7. SIMVASTATIN. [Concomitant]
     Active Substance: SIMVASTATIN
  8. DIAZEPAM. [Concomitant]
     Active Substance: DIAZEPAM
  9. GLUCOSALINE [Concomitant]
  10. INSULIN RAPID [Concomitant]
     Active Substance: INSULIN NOS
  11. PLANTAGO OVATA [Concomitant]
     Active Substance: HERBALS\PLANTAGO OVATA LEAF
  12. UNDECYLENAMIDOPROPYL BETAINE [Concomitant]
  13. LEVOFLOXACIN. [Concomitant]
     Active Substance: LEVOFLOXACIN
  14. METOCLOPRAMIDE. [Concomitant]
     Active Substance: METOCLOPRAMIDE

REACTIONS (3)
  - Anal abscess [Recovered/Resolved with Sequelae]
  - Malignant neoplasm progression [Fatal]
  - Ileus paralytic [Not Recovered/Not Resolved]

NARRATIVE: CASE EVENT DATE: 20200827
